FAERS Safety Report 15690377 (Version 1)
Quarter: 2018Q4

REPORT INFORMATION
  Report Type: Spontaneous
  Country: US (occurrence: US)
  Receive Date: 20181205
  Receipt Date: 20181205
  Transmission Date: 20190205
  Serious: No
  Sender: FDA-Public Use
  Company Number: US-PFIZER INC-2018500526

PATIENT
  Age: 52 Year
  Sex: Male

DRUGS (1)
  1. GENOTROPIN [Suspect]
     Active Substance: SOMATROPIN
     Indication: BLOOD GROWTH HORMONE
     Dosage: 0.2 MG, DAILY
     Dates: start: 20100422

REACTIONS (5)
  - Mean cell haemoglobin concentration increased [Unknown]
  - Blood testosterone increased [Unknown]
  - Platelet count decreased [Unknown]
  - Fatigue [Unknown]
  - Reverse tri-iodothyronine decreased [Unknown]
